FAERS Safety Report 8317876-8 (Version None)
Quarter: 2012Q2

REPORT INFORMATION
  Report Type: 
  Country: None (occurrence: None)
  Receive Date: 20120427
  Receipt Date: 20120419
  Transmission Date: 20120825
  Serious: Yes (Hospitalization)
  Sender: FDA-Public Use
  Company Number: US-BAYER-2011-123166

PATIENT
  Age: 29 Year
  Sex: Female
  Weight: 65.76 kg

DRUGS (2)
  1. YAZ [Suspect]
  2. YAZ [Suspect]
     Indication: PREMENSTRUAL SYNDROME
     Dosage: 1 PILL DAILY
     Route: 048
     Dates: start: 20100701, end: 20101001

REACTIONS (8)
  - NEUROPATHY PERIPHERAL [None]
  - PAIN [None]
  - HYPOAESTHESIA [None]
  - PULMONARY EMBOLISM [None]
  - PLEURAL EFFUSION [None]
  - PULMONARY INFARCTION [None]
  - MENTAL DISORDER [None]
  - CEREBROVASCULAR ACCIDENT [None]
